FAERS Safety Report 13318524 (Version 1)
Quarter: 2017Q1

REPORT INFORMATION
  Report Type: Spontaneous
  Country: US (occurrence: US)
  Receive Date: 20170310
  Receipt Date: 20170310
  Transmission Date: 20170428
  Serious: No
  Sender: FDA-Public Use
  Company Number: None

PATIENT
  Age: 28 Year
  Sex: Female
  Weight: 52.65 kg

DRUGS (10)
  1. VITAMIN B12 [Concomitant]
     Active Substance: CYANOCOBALAMIN
  2. CALCIUM WITH VITAMIN D [Concomitant]
     Active Substance: CALCIUM\VITAMIN D
  3. CULTERELLE PROBIOTIC (VEGAN+GLUTEN FREE) [Concomitant]
  4. PROVENTIL HFA [Suspect]
     Active Substance: ALBUTEROL SULFATE
     Indication: BRONCHITIS
     Dosage: ?          OTHER STRENGTH:GM;QUANTITY:2 PUFF(S);?
     Route: 055
     Dates: start: 20170125, end: 20170127
  5. METAMUCIL [Concomitant]
     Active Substance: PLANTAGO SEED
  6. FLUTICASONE. [Concomitant]
     Active Substance: FLUTICASONE
  7. CLARITIN [Concomitant]
     Active Substance: LORATADINE
  8. SYNTHROID [Concomitant]
     Active Substance: LEVOTHYROXINE SODIUM
  9. LORATADINE. [Concomitant]
     Active Substance: LORATADINE
  10. BIOTIN [Concomitant]
     Active Substance: BIOTIN

REACTIONS (2)
  - Skin mass [None]
  - Headache [None]

NARRATIVE: CASE EVENT DATE: 20170127
